FAERS Safety Report 4952989-X (Version None)
Quarter: 2006Q1

REPORT INFORMATION
  Report Type: 
  Country: None (occurrence: None)
  Receive Date: 20060324
  Receipt Date: 20060208
  Transmission Date: 20060701
  Serious: Yes (Disabling)
  Sender: FDA-Public Use
  Company Number: FR-NOVOPROD-250807

PATIENT
  Age: 45 Year
  Sex: Male
  Weight: 58 kg

DRUGS (7)
  1. TISSUCOL [Concomitant]
     Dosage: 20 ML, UNK
     Dates: start: 20050426, end: 20050426
  2. NOVOSEVEN [Suspect]
     Indication: PROPHYLAXIS
     Dosage: 7.2 MG, SINGLE
     Route: 042
     Dates: start: 20050426, end: 20050426
  3. NOVOSEVEN [Suspect]
     Dosage: 7.2 MG, SINGLE
     Route: 042
     Dates: start: 20050426, end: 20050426
  4. TRASYLOL [Concomitant]
     Dosage: 560 ML, UNK
     Route: 042
     Dates: start: 20050426, end: 20050426
  5. HEPARIN [Concomitant]
     Dosage: 280 MG, UNK
     Route: 042
     Dates: start: 20050426, end: 20050426
  6. KASKADIL [Concomitant]
     Dosage: 40 ML, UNK
     Route: 042
     Dates: start: 20050426, end: 20050426
  7. PROTAMINE SULFATE [Concomitant]
     Dosage: 330 MG, UNK
     Route: 042
     Dates: start: 20050426, end: 20050426

REACTIONS (4)
  - BRAIN OEDEMA [None]
  - CEREBRAL ARTERY THROMBOSIS [None]
  - HEMIPLEGIA [None]
  - THROMBOTIC STROKE [None]
